FAERS Safety Report 19946842 (Version 2)
Quarter: 2021Q4

REPORT INFORMATION
  Report Type: Report from Study
  Country: US (occurrence: US)
  Receive Date: 20211012
  Receipt Date: 20211216
  Transmission Date: 20220303
  Serious: Yes (Hospitalization)
  Sender: FDA-Public Use
  Company Number: US-TAKEDA-2021TUS061944

PATIENT
  Sex: Female

DRUGS (2)
  1. VORTIOXETINE [Suspect]
     Active Substance: VORTIOXETINE
     Indication: Product used for unknown indication
     Dosage: 10 MILLIGRAM
     Route: 065
     Dates: start: 20210727
  2. DEXILANT [Suspect]
     Active Substance: DEXLANSOPRAZOLE
     Indication: Product used for unknown indication
     Dosage: 60 MILLIGRAM, BID
     Route: 048

REACTIONS (7)
  - Illness [Recovered/Resolved]
  - Gastric disorder [Unknown]
  - Insomnia [Unknown]
  - Pain [Unknown]
  - Constipation [Unknown]
  - Overdose [Recovered/Resolved]
  - Therapy interrupted [Unknown]
